FAERS Safety Report 6768166-6 (Version None)
Quarter: 2010Q2

REPORT INFORMATION
  Report Type: 
  Country: None (occurrence: None)
  Receive Date: 20100614
  Receipt Date: 20100609
  Transmission Date: 20101027
  Serious: Yes (Death)
  Sender: FDA-Public Use
  Company Number: AT-PURDUE-DEU-2010-0006250

PATIENT
  Age: 22 Year
  Sex: Male

DRUGS (2)
  1. SUBSTITOL RETARD 200 MG-KAPSELN [Suspect]
     Indication: DRUG DEPENDENCE
     Dosage: 200 MG, BID
     Route: 065
  2. SUBSTITOL RETARD 200 MG-KAPSELN [Suspect]
     Indication: DRUG ABUSE

REACTIONS (1)
  - DEATH [None]
